FAERS Safety Report 8928041 (Version 2)
Quarter: 2013Q1

REPORT INFORMATION
  Report Type: Spontaneous
  Country: US (occurrence: None)
  Receive Date: 20121120
  Receipt Date: 20130204
  Transmission Date: 20140127
  Serious: Yes (Hospitalization)
  Sender: FDA-Public Use
  Company Number: DSA_60907_2012

PATIENT
  Age: 48 Year
  Sex: Female

DRUGS (1)
  1. XENAZINE (NOT SPECIFIED) [Suspect]
     Indication: HUNTINGTON^S DISEASE
     Dosage: 75 MG, PER DAY IN DIVIDED DOSES ORAL
     Dates: start: 200902

REACTIONS (4)
  - Endotracheal intubation complication [None]
  - Hospice care [None]
  - Device difficult to use [None]
  - Unevaluable event [None]
